FAERS Safety Report 23468630 (Version 1)
Quarter: 2024Q1

REPORT INFORMATION
  Report Type: Spontaneous
  Country: US (occurrence: None)
  Receive Date: 20240201
  Receipt Date: 20240201
  Transmission Date: 20240410
  Serious: No
  Sender: FDA-Public Use
  Company Number: None

PATIENT
  Sex: Male

DRUGS (2)
  1. MEKTOVI [Suspect]
     Active Substance: BINIMETINIB
     Indication: Metastases to lung
     Dosage: 45 MG 2 TIMES DAILY BY MOUTH
     Route: 048
     Dates: start: 202312
  2. BRAFTOVI [Suspect]
     Active Substance: ENCORAFENIB
     Indication: Metastases to lung
     Dosage: FREQUENCY : DAILY;?
     Route: 048
     Dates: start: 202312

REACTIONS (6)
  - Pyrexia [None]
  - Chills [None]
  - Hyperhidrosis [None]
  - Pain [None]
  - Fatigue [None]
  - Therapy interrupted [None]
